FAERS Safety Report 9386703 (Version 1)
Quarter: 2013Q3

REPORT INFORMATION
  Report Type: Spontaneous
  Country: US (occurrence: None)
  Receive Date: 20130703
  Receipt Date: 20130703
  Transmission Date: 20140515
  Serious: Yes (Life-Threatening)
  Sender: FDA-Public Use
  Company Number: None

PATIENT
  Age: 79 Year
  Sex: Female

DRUGS (9)
  1. LEVOFLOXACIN [Suspect]
     Indication: UPPER RESPIRATORY TRACT INFECTION
     Dates: start: 20130330, end: 20130403
  2. BACLOFEN [Concomitant]
  3. DIAZEPAM [Concomitant]
  4. ESOMEPRAZOLE [Concomitant]
  5. LEVETIRACETAM [Concomitant]
  6. MEDROXYPROGESTERONE INJ [Concomitant]
  7. PHENOBARBITAL [Concomitant]
  8. PHENYTOIN [Concomitant]
  9. POLYETHYLENE GLYCOL [Concomitant]

REACTIONS (10)
  - Convulsion [None]
  - No therapeutic response [None]
  - Respiratory distress [None]
  - Haemoglobin decreased [None]
  - Haematocrit decreased [None]
  - Haemorrhage intracranial [None]
  - Hepatic failure [None]
  - Idiosyncratic drug reaction [None]
  - International normalised ratio increased [None]
  - Prothrombin time prolonged [None]
